FAERS Safety Report 5342342-1 (Version None)
Quarter: 2007Q2

REPORT INFORMATION
  Report Type: 
  Country: None (occurrence: None)
  Receive Date: 20070601
  Receipt Date: 20070531
  Transmission Date: 20071010
  Serious: Yes (Hospitalization)
  Sender: FDA-Public Use
  Company Number: US-BRISTOL-MYERS SQUIBB COMPANY-13798822

PATIENT
  Age: 69 Year
  Sex: Female
  Weight: 105 kg

DRUGS (8)
  1. PACLITAXEL [Suspect]
     Indication: NON-SMALL CELL LUNG CANCER
     Route: 042
     Dates: start: 20070508, end: 20070508
  2. CARBOPLATIN [Suspect]
     Indication: NON-SMALL CELL LUNG CANCER
     Route: 042
     Dates: start: 20070508, end: 20070508
  3. CARBAMAZEPINE [Concomitant]
     Route: 048
  4. ZOFRAN [Concomitant]
     Route: 048
  5. COMPAZINE [Concomitant]
     Route: 048
  6. TYLENOL [Concomitant]
     Indication: PAIN
     Route: 048
  7. TUMS [Concomitant]
     Route: 048
  8. AMOXICILLIN [Concomitant]
     Route: 048

REACTIONS (3)
  - HYPONATRAEMIA [None]
  - NAUSEA [None]
  - VOMITING [None]
